FAERS Safety Report 13732624 (Version 2)
Quarter: 2017Q3

REPORT INFORMATION
  Report Type: Report from Study
  Country: US (occurrence: US)
  Receive Date: 20170707
  Receipt Date: 20170721
  Transmission Date: 20171127
  Serious: No
  Sender: FDA-Public Use
  Company Number: US-ARIAD-2016US007419

PATIENT
  Sex: Female
  Weight: 69 kg

DRUGS (3)
  1. ICLUSIG [Suspect]
     Active Substance: PONATINIB
     Indication: CHRONIC MYELOID LEUKAEMIA
     Dosage: 45 MG, 3X/WEEK
     Route: 048
     Dates: start: 20161115
  2. ICLUSIG [Suspect]
     Active Substance: PONATINIB
     Dosage: 45 MG, 3X/WEEK
     Route: 048
  3. ICLUSIG [Suspect]
     Active Substance: PONATINIB
     Dosage: 45 MG, 3X/WEEK
     Route: 048

REACTIONS (5)
  - Cough [Recovered/Resolved]
  - Chest discomfort [Unknown]
  - Nasopharyngitis [Recovered/Resolved]
  - Secretion discharge [Recovered/Resolved]
  - Arthralgia [Not Recovered/Not Resolved]
